FAERS Safety Report 11879242 (Version 2)
Quarter: 2016Q1

REPORT INFORMATION
  Report Type: Spontaneous
  Country: US (occurrence: US)
  Receive Date: 20151230
  Receipt Date: 20160115
  Transmission Date: 20160526
  Serious: Yes (Hospitalization)
  Sender: FDA-Public Use
  Company Number: US-PFIZER INC-2015424977

PATIENT
  Age: 66 Year
  Sex: Female

DRUGS (13)
  1. IBRANCE [Suspect]
     Active Substance: PALBOCICLIB
     Dosage: 125 MG, (21 DAYS; DAYS OFF: 7 DAYS)
     Dates: start: 20150224, end: 20150316
  2. IBRANCE [Suspect]
     Active Substance: PALBOCICLIB
     Dosage: 125 MG, (21 DAYS; DAYS OFF: 7 DAYS)
     Dates: start: 20150915, end: 20151005
  3. LETROZOLE. [Concomitant]
     Active Substance: LETROZOLE
     Dosage: 2.5 MG, 1X/DAY
     Dates: start: 20150127
  4. IBRANCE [Suspect]
     Active Substance: PALBOCICLIB
     Dosage: 125 MG, (21 DAYS; DAYS OFF: 7 DAYS)
     Dates: start: 20150714, end: 20150803
  5. IBRANCE [Suspect]
     Active Substance: PALBOCICLIB
     Dosage: 125 MG, (21 DAYS; DAYS OFF: 7 DAYS)
     Dates: start: 20150421, end: 20150511
  6. IBRANCE [Suspect]
     Active Substance: PALBOCICLIB
     Dosage: 125 MG, (21 DAYS; DAYS OFF: 7 DAYS)
     Dates: start: 20151208, end: 20151228
  7. IBRANCE [Suspect]
     Active Substance: PALBOCICLIB
     Dosage: 125 MG, (21 DAYS; DAYS OFF: 7 DAYS)
     Dates: start: 20150324, end: 20150413
  8. IBRANCE [Suspect]
     Active Substance: PALBOCICLIB
     Dosage: 125 MG, (21 DAYS; DAYS OFF: 7 DAYS)
     Dates: start: 20150616, end: 20150706
  9. IBRANCE [Suspect]
     Active Substance: PALBOCICLIB
     Dosage: 125 MG, (21 DAYS; DAYS OFF: 7 DAYS)
     Dates: start: 20151110, end: 20151130
  10. IBRANCE [Suspect]
     Active Substance: PALBOCICLIB
     Indication: BREAST CANCER STAGE IV
     Dosage: 125 MG, (21 DAYS; DAYS OFF: 7 DAYS)
     Dates: start: 20150127, end: 20150216
  11. IBRANCE [Suspect]
     Active Substance: PALBOCICLIB
     Dosage: 125 MG, (21 DAYS; DAYS OFF: 14 DAYS)
     Dates: start: 20150811, end: 20150831
  12. IBRANCE [Suspect]
     Active Substance: PALBOCICLIB
     Dosage: 125 MG, (21 DAYS; DAYS OFF: 7 DAYS)
     Dates: start: 20151013, end: 20151102
  13. IBRANCE [Suspect]
     Active Substance: PALBOCICLIB
     Dosage: 125 MG, (21 DAYS; DAYS OFF: 7 DAYS)
     Dates: start: 20150519, end: 20150608

REACTIONS (2)
  - Madarosis [Unknown]
  - Alopecia [Unknown]

NARRATIVE: CASE EVENT DATE: 201507
